FAERS Safety Report 7341920-8 (Version None)
Quarter: 2011Q1

REPORT INFORMATION
  Report Type: 
  Country: None (occurrence: None)
  Receive Date: 20110309
  Receipt Date: 20110211
  Transmission Date: 20110831
  Serious: No
  Sender: FDA-Public Use
  Company Number: US-B.I. PHARMACEUTICALS,INC./RIDGEFIELD-2011-BP-05962BP

PATIENT
  Sex: Female

DRUGS (3)
  1. PRADAXA [Suspect]
     Indication: ATRIAL FIBRILLATION
     Dosage: 300 MG
     Route: 048
     Dates: start: 20110128
  2. MEDICATION NOT FURTHER SPECIFIED [Concomitant]
     Indication: ATRIAL FIBRILLATION
  3. IRON [Concomitant]
     Indication: ANAEMIA

REACTIONS (2)
  - ANORECTAL DISORDER [None]
  - RECTAL HAEMORRHAGE [None]
